FAERS Safety Report 20102210 (Version 4)
Quarter: 2023Q2

REPORT INFORMATION
  Report Type: Spontaneous
  Country: US (occurrence: US)
  Receive Date: 20211123
  Receipt Date: 20230606
  Transmission Date: 20230722
  Serious: Yes (Other)
  Sender: FDA-Public Use
  Company Number: US-PFIZER INC-202101564911

PATIENT
  Age: 78 Year
  Sex: Male

DRUGS (2)
  1. VYNDAMAX [Suspect]
     Active Substance: TAFAMIDIS
     Dosage: 61 MG
  2. AMIODARONE [Concomitant]
     Active Substance: AMIODARONE
     Dosage: UNK

REACTIONS (8)
  - Atrial fibrillation [Unknown]
  - Prostate cancer [Unknown]
  - Cardiac amyloidosis [Unknown]
  - Atrioventricular block complete [Unknown]
  - Essential hypertension [Unknown]
  - Benign prostatic hyperplasia [Unknown]
  - Amyloidosis senile [Unknown]
  - Atrial flutter [Unknown]
